FAERS Safety Report 5932284-2 (Version None)
Quarter: 2008Q4

REPORT INFORMATION
  Report Type: 
  Country: None (occurrence: None)
  Receive Date: 20081023
  Receipt Date: 20081010
  Transmission Date: 20090506
  Serious: Yes (Death, Life-Threatening, Hospitalization, Disabling)
  Sender: FDA-Public Use
  Company Number: 004582

PATIENT
  Age: 2 Year
  Sex: Female

DRUGS (3)
  1. BUSULFEX [Suspect]
     Indication: STEM CELL TRANSPLANT
     Dosage: 14 MG, QID
     Route: 042
     Dates: start: 20080907, end: 20080910
  2. MELPHALAN (MELPHALAN) [Concomitant]
  3. METHYLPREDNISOLONE (MYTHYLPREDNISOLONE) [Concomitant]

REACTIONS (13)
  - CARDIAC FAILURE [None]
  - COAGULOPATHY [None]
  - CONJUNCTIVAL DISORDER [None]
  - HYPOVOLAEMIA [None]
  - ILEUS PARALYTIC [None]
  - INTESTINAL OBSTRUCTION [None]
  - LUNG DISORDER [None]
  - MUCOUS MEMBRANE DISORDER [None]
  - PIGMENTATION DISORDER [None]
  - RASH [None]
  - RENAL FAILURE [None]
  - SEPSIS [None]
  - VENOOCCLUSIVE LIVER DISEASE [None]
